FAERS Safety Report 13881217 (Version 5)
Quarter: 2019Q1

REPORT INFORMATION
  Report Type: Spontaneous
  Country: US (occurrence: US)
  Receive Date: 20170818
  Receipt Date: 20190314
  Transmission Date: 20190417
  Serious: Yes (Other)
  Sender: FDA-Public Use
  Company Number: US-PFIZER INC-2015342506

PATIENT
  Age: 51 Year
  Sex: Male
  Weight: 88 kg

DRUGS (39)
  1. LYRICA [Suspect]
     Active Substance: PREGABALIN
     Indication: BONE PAIN
  2. LIPITOR [Concomitant]
     Active Substance: ATORVASTATIN CALCIUM
     Dosage: 20 MG, 1X/DAY (PM)
  3. CITALOPRAM [Concomitant]
     Active Substance: CITALOPRAM HYDROBROMIDE
     Dosage: 40 MG, UNK
  4. METHOTREXATE SODIUM. [Concomitant]
     Active Substance: METHOTREXATE SODIUM
     Dosage: 2.5 MG, UNK
  5. LYRICA [Suspect]
     Active Substance: PREGABALIN
     Indication: BACK DISORDER
  6. CYCLOBENZAPRINE. [Concomitant]
     Active Substance: CYCLOBENZAPRINE
     Indication: MUSCLE SPASMS
     Dosage: 10 MG, 3X/DAY
     Route: 048
     Dates: end: 2015
  7. BACLOFEN. [Concomitant]
     Active Substance: BACLOFEN
     Indication: MUSCLE SPASMS
     Dosage: 145.5 UG, DAILY
     Dates: start: 2013
  8. PRIMIDONE. [Concomitant]
     Active Substance: PRIMIDONE
     Indication: ESSENTIAL TREMOR
     Dosage: 50 MG, UNK
  9. OXYCODONE [Concomitant]
     Active Substance: OXYCODONE
     Dosage: 10 MG, AS NEEDED (EVERY 8 HOURS)
     Route: 048
  10. TAMSULOSIN [Concomitant]
     Active Substance: TAMSULOSIN
     Dosage: 0.4 MG, 1X/DAY (1 CAPSULE EVERY DAY)
     Route: 048
  11. FUROSEMIDE. [Concomitant]
     Active Substance: FUROSEMIDE
     Dosage: 40 MG, UNK
  12. LYRICA [Suspect]
     Active Substance: PREGABALIN
     Indication: NEUROPATHY PERIPHERAL
     Dosage: 300 MG, 2X/DAY
     Route: 048
     Dates: start: 2013
  13. WARFARIN [Concomitant]
     Active Substance: WARFARIN
     Dosage: 10 MG, UNK
  14. NUEDEXTA [Concomitant]
     Active Substance: DEXTROMETHORPHAN HYDROBROMIDE\QUINIDINE SULFATE
     Dosage: UNK, 2X/DAY  (20-10 MG, AM AND PM)
  15. DOCUSATE SODIUM. [Concomitant]
     Active Substance: DOCUSATE SODIUM
     Dosage: 300 MG, 1X/DAY
  16. OLOPATADINE HYDROCHLORIDE. [Concomitant]
     Active Substance: OLOPATADINE HYDROCHLORIDE
     Dosage: UNK
  17. EDARBI [Concomitant]
     Active Substance: AZILSARTAN KAMEDOXOMIL
     Indication: BLOOD PRESSURE ABNORMAL
     Dosage: 40 MG, 1X/DAY
     Route: 048
  18. CELEXA [Concomitant]
     Active Substance: CITALOPRAM HYDROBROMIDE
     Indication: ESSENTIAL TREMOR
     Dosage: 40 MG, 1X/DAY (AM)
     Route: 048
  19. WARFARIN [Concomitant]
     Active Substance: WARFARIN
     Dosage: 5 MG, UNK
  20. METHOTREXATE. [Concomitant]
     Active Substance: METHOTREXATE
     Dosage: 15 MG, WEEKLY (2.5MG 6 TABLETS ON THURSDAY)
  21. MIRALAX [Concomitant]
     Active Substance: POLYETHYLENE GLYCOL 3350
     Dosage: UNK, DAILY
  22. BACLOFEN. [Concomitant]
     Active Substance: BACLOFEN
     Dosage: 20 MG, AS NEEDED (4 TIMES A DAY)
     Route: 048
  23. LYRICA [Suspect]
     Active Substance: PREGABALIN
     Indication: RADICULOPATHY
  24. BACLOFEN. [Concomitant]
     Active Substance: BACLOFEN
     Dosage: UNK (625 UG/ML (20CC VIA INFUSION PUMP))
  25. CALCIUM [Concomitant]
     Active Substance: CALCIUM
     Dosage: 500 MG, 1X/DAY (PM)
  26. DILAUDID [Concomitant]
     Active Substance: HYDROMORPHONE HYDROCHLORIDE
     Dosage: 4.656 MG, DAILY
  27. DILAUDID [Concomitant]
     Active Substance: HYDROMORPHONE HYDROCHLORIDE
     Dosage: 20 MG/ML, UNK (IN 20CC VIA INFUSION PUMP)
  28. PRIMIDONE. [Concomitant]
     Active Substance: PRIMIDONE
     Dosage: 150 MG, 2X/DAY
     Route: 048
  29. WARFARIN [Concomitant]
     Active Substance: WARFARIN
     Dosage: UNK (15MG MON AND FRI, OTHER DAYS 12.5MG (PM))
  30. FOLIC ACID. [Concomitant]
     Active Substance: FOLIC ACID
     Dosage: 1 MG, 1X/DAY (AM)
  31. ATORVASTATIN CALCIUM. [Concomitant]
     Active Substance: ATORVASTATIN CALCIUM
     Dosage: 20 MG, UNK
  32. VERAPAMIL [Concomitant]
     Active Substance: VERAPAMIL HYDROCHLORIDE
     Indication: BLOOD PRESSURE ABNORMAL
     Dosage: 240 MG, 1X/DAY
     Route: 048
     Dates: end: 2016
  33. OXYCODONE [Concomitant]
     Active Substance: OXYCODONE
     Indication: BACK PAIN
     Dosage: 10 MG, AS NEEDED (4 TIMES A DAY AS NEEDED)
     Route: 048
     Dates: start: 2012
  34. VITAMIN D [Concomitant]
     Active Substance: CHOLECALCIFEROL
     Dosage: 2000 IU, UNK
  35. SYMBICORT [Concomitant]
     Active Substance: BUDESONIDE\FORMOTEROL FUMARATE DIHYDRATE
     Dosage: UNK, 2X/DAY  (INHALER 160/4.5, 2 PUFFS (AM AND PM)
  36. FLOMAX [Concomitant]
     Active Substance: TAMSULOSIN HYDROCHLORIDE
     Dosage: 0.4 MG, 2X/DAY
  37. LYRICA [Suspect]
     Active Substance: PREGABALIN
     Indication: PAIN
  38. MYSOLINE [Concomitant]
     Active Substance: PRIMIDONE
     Dosage: 200 MG, 2X/DAY (AM AND PM))
  39. LASIX [Concomitant]
     Active Substance: FUROSEMIDE
     Dosage: 40 MG, 1X/DAY (PM)

REACTIONS (6)
  - Skull fracture [Recovering/Resolving]
  - Amnesia [Not Recovered/Not Resolved]
  - Fall [Recovered/Resolved with Sequelae]
  - Weight decreased [Unknown]
  - Brain injury [Recovering/Resolving]
  - Product dose omission [Unknown]

NARRATIVE: CASE EVENT DATE: 2014
